FAERS Safety Report 7658685-2 (Version None)
Quarter: 2011Q3

REPORT INFORMATION
  Report Type: 
  Country: None (occurrence: None)
  Receive Date: 20110804
  Receipt Date: 20110804
  Transmission Date: 20111222
  Serious: No
  Sender: FDA-Public Use
  Company Number: None

PATIENT
  Sex: Female
  Weight: 81.6475 kg

DRUGS (1)
  1. PRADAXA [Suspect]
     Indication: CARDIAC ABLATION
     Dosage: 150MG 2 X DAY ORAL
     Route: 048
     Dates: start: 20110425, end: 20110620

REACTIONS (1)
  - ALOPECIA [None]
